FAERS Safety Report 8229246-1 (Version None)
Quarter: 2012Q1

REPORT INFORMATION
  Report Type: 
  Country: None (occurrence: None)
  Receive Date: 20120322
  Receipt Date: 20120319
  Transmission Date: 20120608
  Serious: Yes (Hospitalization)
  Sender: FDA-Public Use
  Company Number: US-VERTEX PHARMACEUTICALS INC.-AE-2012-003832

PATIENT
  Sex: Female

DRUGS (3)
  1. RIBAVIRIN [Concomitant]
     Indication: HEPATITIS C
     Dates: end: 20120318
  2. PEGASYS [Concomitant]
     Indication: HEPATITIS C
     Route: 058
     Dates: end: 20120318
  3. INCIVEK [Suspect]
     Indication: HEPATITIS C
     Route: 048
     Dates: end: 20120318

REACTIONS (2)
  - RASH [None]
  - MOUTH ULCERATION [None]
